FAERS Safety Report 5744096-3 (Version None)
Quarter: 2008Q2

REPORT INFORMATION
  Report Type: 
  Country: None (occurrence: None)
  Receive Date: 20080520
  Receipt Date: 20080513
  Transmission Date: 20081010
  Serious: Yes (Other)
  Sender: FDA-Public Use
  Company Number: A0728626A

PATIENT
  Age: 21 Year
  Sex: Female
  Weight: 63.5 kg

DRUGS (2)
  1. AMOXICILLIN [Suspect]
     Indication: URINARY TRACT INFECTION
     Route: 065
     Dates: start: 20080402
  2. LEVONORGESTREL [Suspect]
     Indication: CONTRACEPTION
     Dosage: 1TAB TWICE PER DAY
     Route: 048

REACTIONS (3)
  - DRUG INEFFECTIVE [None]
  - NAUSEA [None]
  - VAGINAL HAEMORRHAGE [None]
